FAERS Safety Report 4808793-6 (Version None)
Quarter: 2005Q4

REPORT INFORMATION
  Report Type: 
  Country: None (occurrence: None)
  Receive Date: 20051020
  Receipt Date: 20051020
  Transmission Date: 20060501
  Serious: Yes (Hospitalization, Other)
  Sender: FDA-Public Use
  Company Number: None

PATIENT
  Sex: Male
  Weight: 109 kg

DRUGS (11)
  1. TEMOZOLOMIDE [Suspect]
     Indication: NERVOUS SYSTEM DISORDER
     Dosage: 75 MG/M2 DURING RADIATION X 6 WKS THEN POST RADIATION CHEMOTHERAPY
     Dates: start: 20050504
  2. TEMOZOLOMIDE [Suspect]
     Dosage: 150 MG/M2 DAYS 1-5 TOTAL DOSE 345 MG
     Dates: start: 20050913, end: 20050917
  3. IRINOTECAN HCL [Suspect]
     Dosage: 200 MG/M2 ON DAYS 1 AND 15 FOR 12 TWENTY EIGHT DAY CYCLES UNTIL DISEASE PROGRESSION TOTAL DOSE 910 M
     Dates: start: 20050812, end: 20050913
  4. RADIATION [Suspect]
     Dosage: 2.0 G EXTERNAL BEAM NOS TOTAL DOSE 60 GY
     Dates: end: 20050621
  5. ATENOLOL [Concomitant]
  6. AVANDIA [Concomitant]
  7. DECADRON [Concomitant]
  8. FLOMAX [Concomitant]
  9. TRICOR [Concomitant]
  10. ZOFRAN [Concomitant]
  11. XANAX [Concomitant]

REACTIONS (3)
  - BLOOD COUNT ABNORMAL [None]
  - DEEP VEIN THROMBOSIS [None]
  - GENERAL PHYSICAL HEALTH DETERIORATION [None]
